FAERS Safety Report 7096941-X (Version None)
Quarter: 2010Q4

REPORT INFORMATION
  Report Type: 
  Country: None (occurrence: None)
  Receive Date: 20101111
  Receipt Date: 20100305
  Transmission Date: 20110411
  Serious: No
  Sender: FDA-Public Use
  Company Number: US-KINGPHARMUSA00001-K201000285

PATIENT
  Age: 71 Year
  Sex: Male
  Weight: 102.4 kg

DRUGS (9)
  1. FLECTOR [Suspect]
     Indication: BACK PAIN
     Dosage: UNK PATCH
     Route: 061
     Dates: start: 20090301, end: 20090301
  2. TRICOR [Concomitant]
     Indication: BLOOD CHOLESTEROL INCREASED
     Dosage: UNK
     Route: 048
  3. FLUOXETINE [Concomitant]
     Indication: DEPRESSION
     Dosage: UNK
     Route: 048
  4. AMLODIPINE [Concomitant]
     Indication: HYPERTENSION
     Dosage: UNK
     Route: 048
  5. SIMVASTATIN [Concomitant]
     Indication: BLOOD CHOLESTEROL INCREASED
     Dosage: UNK
     Route: 048
  6. FISH OIL [Concomitant]
     Dosage: UNK
     Route: 048
  7. CENTRUM [Concomitant]
     Dosage: UNK
     Route: 048
  8. OSTEOBIFLEX [Concomitant]
     Dosage: UNK
     Route: 048
  9. HYDROCHLOROTHIAZIDE [Concomitant]
     Indication: HYPERTENSION
     Dosage: UNK
     Route: 048

REACTIONS (1)
  - DRUG INEFFECTIVE [None]
